FAERS Safety Report 7927174-X (Version None)
Quarter: 2011Q4

REPORT INFORMATION
  Report Type: 
  Country: None (occurrence: None)
  Receive Date: 20111118
  Receipt Date: 20111110
  Transmission Date: 20120403
  Serious: Yes (Death, Other)
  Sender: FDA-Public Use
  Company Number: US-TEVA-308731USA

PATIENT
  Sex: Female
  Weight: 63.106 kg

DRUGS (10)
  1. MULTI-VITAMIN [Concomitant]
  2. TRAZODONE HCL [Interacting]
     Indication: DEMENTIA
     Dosage: 75 MG DAILY
     Dates: end: 20111027
  3. DULOXETINE HYDROCHLORIDE [Suspect]
     Indication: DEPRESSION
     Dosage: 60 MG DAILY
  4. ROPINIROLE HYDROCHLORIDE [Concomitant]
     Indication: PARKINSON'S DISEASE
     Dosage: 25/100
  5. RISPERIDONE [Concomitant]
     Indication: DEMENTIA
  6. ACETAMINOPHEN [Concomitant]
     Indication: PAIN
  7. AZILECT [Interacting]
     Indication: PARKINSON'S DISEASE
     Dates: end: 20111020
  8. SINEMET [Concomitant]
     Indication: PARKINSON'S DISEASE
  9. WARFARIN SODIUM [Concomitant]
     Indication: ATRIAL FIBRILLATION
  10. NUEDEXTA [Interacting]
     Indication: AFFECT LABILITY

REACTIONS (5)
  - UNRESPONSIVE TO STIMULI [None]
  - DRUG INTERACTION [None]
  - SEROTONIN SYNDROME [None]
  - BLOOD ELECTROLYTES ABNORMAL [None]
  - DYSSTASIA [None]
